FAERS Safety Report 5852536-4 (Version None)
Quarter: 2008Q3

REPORT INFORMATION
  Report Type: 
  Country: None (occurrence: None)
  Receive Date: 20080819
  Receipt Date: 20080807
  Transmission Date: 20090109
  Serious: Yes (Life-Threatening, Hospitalization)
  Sender: FDA-Public Use
  Company Number: 2008AL003212

PATIENT
  Age: 77 Year
  Sex: Male
  Weight: 102.5129 kg

DRUGS (9)
  1. DIGOXIN [Suspect]
     Indication: CORONARY ARTERY BYPASS
     Dosage: 0.25MG  DAILY PO
     Route: 048
     Dates: start: 20030101, end: 20080201
  2. DIGOXIN [Suspect]
     Indication: ATRIAL FIBRILLATION
     Dosage: 0.25MG DAILY PO
     Route: 048
     Dates: start: 20040101, end: 20080201
  3. COUMADIN [Concomitant]
  4. DIOVAN [Concomitant]
  5. METFORMIN HCL [Concomitant]
  6. FLOMAX [Concomitant]
  7. LIPITOR [Concomitant]
  8. ACTOS [Concomitant]
  9. PLAVIX [Concomitant]

REACTIONS (13)
  - ATRIAL FLUTTER [None]
  - BLOOD TRIGLYCERIDES INCREASED [None]
  - CHEST DISCOMFORT [None]
  - DYSPNOEA [None]
  - FATIGUE [None]
  - GLYCOSYLATED HAEMOGLOBIN INCREASED [None]
  - HEART RATE INCREASED [None]
  - HIGH DENSITY LIPOPROTEIN DECREASED [None]
  - HYPERHIDROSIS [None]
  - LYMPHOCYTE PERCENTAGE DECREASED [None]
  - MONOCYTE PERCENTAGE DECREASED [None]
  - PALPITATIONS [None]
  - PROTHROMBIN TIME PROLONGED [None]
